FAERS Safety Report 7776504-0 (Version None)
Quarter: 2011Q3

REPORT INFORMATION
  Report Type: 
  Country: None (occurrence: None)
  Receive Date: 20110926
  Receipt Date: 20110921
  Transmission Date: 20111222
  Serious: Yes (Other)
  Sender: FDA-Public Use
  Company Number: JP-PFIZER INC-2011221827

PATIENT
  Age: 33 Year
  Sex: Male
  Weight: 55 kg

DRUGS (5)
  1. VARENICLINE TARTRATE [Suspect]
     Dosage: 1 MG, 2X/DAY
     Route: 048
     Dates: start: 20110819, end: 20110101
  2. VARENICLINE TARTRATE [Suspect]
     Dosage: 0.5 MG, 2X/DAY
     Route: 048
     Dates: start: 20110724, end: 20110727
  3. VARENICLINE TARTRATE [Suspect]
     Dosage: 1 MG, 2X/DAY
     Route: 048
     Dates: start: 20110728, end: 20110101
  4. VARENICLINE TARTRATE [Suspect]
     Dosage: 1 MG, 1X/DAY
     Route: 048
     Dates: start: 20110101, end: 20110101
  5. VARENICLINE TARTRATE [Suspect]
     Indication: NICOTINE DEPENDENCE
     Dosage: 0.5 MG, 1X/DAY
     Route: 048
     Dates: start: 20110721, end: 20110723

REACTIONS (5)
  - ROAD TRAFFIC ACCIDENT [None]
  - NAUSEA [None]
  - FEELING ABNORMAL [None]
  - SOMNOLENCE [None]
  - IRRITABILITY [None]
